FAERS Safety Report 19279324 (Version 3)
Quarter: 2021Q2

REPORT INFORMATION
  Report Type: Spontaneous
  Country: FR (occurrence: FR)
  Receive Date: 20210520
  Receipt Date: 20210624
  Transmission Date: 20210717
  Serious: Yes (Death, Other)
  Sender: FDA-Public Use
  Company Number: FR-PFIZER INC-2021519517

PATIENT
  Age: 76 Year
  Sex: Female
  Weight: 57 kg

DRUGS (21)
  1. CISATRACURIUM BESILATE [Suspect]
     Active Substance: CISATRACURIUM BESYLATE
     Indication: SEDATION
     Dosage: 50 MG, 1X/DAY
     Route: 042
     Dates: start: 20210405, end: 20210406
  2. VORICONAZOLE. [Suspect]
     Active Substance: VORICONAZOLE
     Indication: LUNG DISORDER
     Dosage: 400 MG, 1X/DAY
     Route: 042
     Dates: start: 20210403, end: 20210406
  3. ZAVICEFTA [Suspect]
     Active Substance: AVIBACTAM SODIUM\CEFTAZIDIME
     Indication: LUNG DISORDER
     Dosage: 4 G, 1X/DAY
     Dates: start: 20210408, end: 20210411
  4. CEFEPIME [Suspect]
     Active Substance: CEFEPIME HYDROCHLORIDE
     Indication: PNEUMONIA PNEUMOCOCCAL
     Dosage: 4 G, 1X/DAY
     Route: 042
     Dates: start: 20210331, end: 20210406
  5. ISOPTINE [Concomitant]
     Active Substance: VERAPAMIL HYDROCHLORIDE
     Dosage: UNK
  6. KARDEGIC [Concomitant]
     Active Substance: ASPIRIN DL-LYSINE
     Dosage: UNK
  7. PANTOPRAZOLE [Concomitant]
     Active Substance: PANTOPRAZOLE
     Dosage: UNK
  8. BACTRIM [Suspect]
     Active Substance: SULFAMETHOXAZOLE\TRIMETHOPRIM
     Indication: ANTIBIOTIC PROPHYLAXIS
     Dosage: 1 DF, 1X/DAY
     Route: 042
     Dates: start: 20210405, end: 20210406
  9. HEPARIN SODIUM. [Suspect]
     Active Substance: HEPARIN SODIUM
     Indication: PROPHYLAXIS
     Dosage: 2500 IU, 1X/DAY
     Route: 067
     Dates: start: 20210406, end: 20210415
  10. LOVENOX [LEVOFLOXACIN] [Suspect]
     Active Substance: LEVOFLOXACIN
     Dosage: UNK
  11. DEXAMETHASONE. [Suspect]
     Active Substance: DEXAMETHASONE
     Indication: COVID-19
     Dosage: 6 MG, 1X/DAY
     Route: 014
     Dates: start: 20210403, end: 20210406
  12. SUFENTANIL [Suspect]
     Active Substance: SUFENTANIL
     Indication: SEDATION
     Dosage: 50 UG, 1X/DAY
     Route: 042
     Dates: start: 20210405, end: 20210406
  13. HYPERIUM [Concomitant]
     Active Substance: RILMENIDINE PHOSPHATE
     Dosage: UNK
  14. CRESTOR [Concomitant]
     Active Substance: ROSUVASTATIN CALCIUM
     Dosage: UNK
  15. MIDAZOLAM. [Suspect]
     Active Substance: MIDAZOLAM
     Indication: SEDATION
     Dosage: 50 MG, 1X/DAY
     Route: 042
     Dates: start: 20210405, end: 20210406
  16. CORTANCYL [Concomitant]
     Active Substance: PREDNISONE
     Dosage: UNK
  17. VALACICLOVIR [Suspect]
     Active Substance: VALACYCLOVIR HYDROCHLORIDE
     Indication: ANTIBIOTIC PROPHYLAXIS
     Dosage: 500 MG, 1X/DAY
     Route: 048
     Dates: start: 20210405, end: 20210406
  18. CALCIDOSE [CALCIUM CARBONATE;COLECALCIFEROL;PHYTOMENADIONE] [Concomitant]
     Dosage: UNK
  19. MEROPENEM. [Suspect]
     Active Substance: MEROPENEM
     Dosage: UNK
     Dates: start: 20210411
  20. LASILIX [FUROSEMIDE SODIUM] [Suspect]
     Active Substance: FUROSEMIDE SODIUM
     Indication: ACUTE PULMONARY OEDEMA
     Dosage: 500 MG, 1X/DAY
     Route: 042
     Dates: start: 20210405, end: 20210407
  21. EUPRESSYL [URAPIDIL] [Suspect]
     Active Substance: URAPIDIL
     Indication: HYPERTENSION
     Dosage: 250 MG, 1X/DAY
     Dates: start: 20210407, end: 20210415

REACTIONS (6)
  - Toxic encephalopathy [Fatal]
  - Myoclonus [Unknown]
  - Off label use [Unknown]
  - Mixed liver injury [Unknown]
  - Multiple organ dysfunction syndrome [Unknown]
  - Product use issue [Unknown]

NARRATIVE: CASE EVENT DATE: 20210403
